FAERS Safety Report 9542022 (Version 2)
Quarter: 2013Q4

REPORT INFORMATION
  Report Type: Report from Study
  Country: CA (occurrence: CA)
  Receive Date: 20130923
  Receipt Date: 20131126
  Transmission Date: 20140711
  Serious: Yes (Death, Hospitalization, Other)
  Sender: FDA-Public Use
  Company Number: PHHY2013CA103424

PATIENT
  Age: 82 Year
  Sex: Male

DRUGS (2)
  1. AFINITOR [Suspect]
     Indication: NEUROENDOCRINE CARCINOMA
     Dosage: 5 MG, QD
     Route: 048
     Dates: start: 20120910, end: 20130724
  2. SANDOSTATIN LAR [Suspect]
     Indication: NEUROENDOCRINE CARCINOMA
     Dosage: 60 MG EVERY 4 WEEKS
     Route: 030
     Dates: start: 20121008, end: 20130817

REACTIONS (7)
  - Renal failure [Fatal]
  - Pancreatic neoplasm [Unknown]
  - Renal neoplasm [Unknown]
  - Drug intolerance [Unknown]
  - Haemoglobin decreased [Unknown]
  - Asthenia [Unknown]
  - Drug ineffective [Unknown]
